FAERS Safety Report 8207281-7 (Version None)
Quarter: 2012Q1

REPORT INFORMATION
  Report Type: 
  Country: None (occurrence: None)
  Receive Date: 20120314
  Receipt Date: 20120308
  Transmission Date: 20120608
  Serious: Yes (Other)
  Sender: FDA-Public Use
  Company Number: FR-EISAI INC-E3810-05376-SPO-FR

PATIENT
  Sex: Male

DRUGS (10)
  1. ATORVASTATIN [Suspect]
     Route: 048
     Dates: start: 20090101
  2. JANUVIA [Suspect]
     Indication: TYPE 2 DIABETES MELLITUS
     Route: 048
     Dates: start: 20090501
  3. AVANDAMET [Suspect]
     Indication: TYPE 2 DIABETES MELLITUS
     Route: 048
  4. CLONAZEPAM [Suspect]
     Route: 048
     Dates: start: 20090101
  5. AVANDIA [Suspect]
     Indication: TYPE 2 DIABETES MELLITUS
     Route: 048
     Dates: start: 20071001
  6. METFORMIN HCL [Suspect]
     Indication: TYPE 2 DIABETES MELLITUS
     Route: 048
     Dates: start: 20071001
  7. DIAMICRON [Suspect]
     Indication: TYPE 2 DIABETES MELLITUS
     Route: 048
     Dates: start: 20080501
  8. IRBESARTAN [Suspect]
     Route: 048
     Dates: start: 20090901
  9. RABEPRAZOLE SODIUM [Suspect]
     Route: 048
     Dates: start: 20090101
  10. ACTOS [Concomitant]
     Indication: TYPE 2 DIABETES MELLITUS
     Route: 048
     Dates: start: 20101201

REACTIONS (1)
  - PROSTATE CANCER [None]
